FAERS Safety Report 8139523-0 (Version None)
Quarter: 2012Q1

REPORT INFORMATION
  Report Type: 
  Country: None (occurrence: None)
  Receive Date: 20120215
  Receipt Date: 20120214
  Transmission Date: 20120608
  Serious: Yes (Hospitalization)
  Sender: FDA-Public Use
  Company Number: US-GILEAD-2011-0047925

PATIENT
  Age: 56 Year
  Sex: Female

DRUGS (10)
  1. AMITRIPTYLINE HCL [Concomitant]
  2. ERGOCALCIFEROL [Concomitant]
  3. EFAVIRENZ/EMTRICITABINE/TENOFOVIR DISOPROXIL FUMARATE [Suspect]
     Indication: HIV INFECTION
     Dosage: 1 DF, QD
     Route: 048
     Dates: start: 20101027
  4. IBUPROFEN [Concomitant]
  5. MYDOCALM                           /02389701/ [Concomitant]
  6. AMITRIPTYLINE HCL [Concomitant]
  7. NOVALGIN                           /06276704/ [Concomitant]
  8. ARCOXIA [Concomitant]
  9. RESTEX [Concomitant]
  10. LEVOTHYROXINE SODIUM [Concomitant]

REACTIONS (1)
  - DERMAL CYST [None]
